FAERS Safety Report 25529081 (Version 1)
Quarter: 2025Q3

REPORT INFORMATION
  Report Type: Spontaneous
  Country: US (occurrence: US)
  Receive Date: 20250708
  Receipt Date: 20250708
  Transmission Date: 20251021
  Serious: Yes (Other)
  Sender: MYLAN
  Company Number: US-MYLANLABS-2025M1056378

PATIENT
  Age: 56 Year
  Sex: Female

DRUGS (24)
  1. AMLODIPINE [Suspect]
     Active Substance: AMLODIPINE BESYLATE
     Indication: Hypertension
     Route: 065
  2. AMLODIPINE [Suspect]
     Active Substance: AMLODIPINE BESYLATE
  3. AMLODIPINE [Suspect]
     Active Substance: AMLODIPINE BESYLATE
  4. AMLODIPINE [Suspect]
     Active Substance: AMLODIPINE BESYLATE
     Route: 065
  5. AMLODIPINE [Suspect]
     Active Substance: AMLODIPINE BESYLATE
     Route: 065
  6. AMLODIPINE [Suspect]
     Active Substance: AMLODIPINE BESYLATE
  7. AMLODIPINE [Suspect]
     Active Substance: AMLODIPINE BESYLATE
  8. AMLODIPINE [Suspect]
     Active Substance: AMLODIPINE BESYLATE
     Route: 065
  9. LOSARTAN [Suspect]
     Active Substance: LOSARTAN
     Indication: Hypertension
  10. LOSARTAN [Suspect]
     Active Substance: LOSARTAN
     Route: 065
  11. LOSARTAN [Suspect]
     Active Substance: LOSARTAN
     Route: 065
  12. LOSARTAN [Suspect]
     Active Substance: LOSARTAN
  13. METOPROLOL [Suspect]
     Active Substance: METOPROLOL
     Indication: Hypertension
     Route: 065
  14. METOPROLOL [Suspect]
     Active Substance: METOPROLOL
  15. METOPROLOL [Suspect]
     Active Substance: METOPROLOL
  16. METOPROLOL [Suspect]
     Active Substance: METOPROLOL
     Route: 065
  17. METOPROLOL [Suspect]
     Active Substance: METOPROLOL
     Route: 065
  18. METOPROLOL [Suspect]
     Active Substance: METOPROLOL
  19. METOPROLOL [Suspect]
     Active Substance: METOPROLOL
  20. METOPROLOL [Suspect]
     Active Substance: METOPROLOL
     Route: 065
  21. FERROUS SULFATE [Concomitant]
     Active Substance: FERROUS SULFATE
     Indication: Anaemia
  22. FERROUS SULFATE [Concomitant]
     Active Substance: FERROUS SULFATE
     Route: 065
  23. FERROUS SULFATE [Concomitant]
     Active Substance: FERROUS SULFATE
     Route: 065
  24. FERROUS SULFATE [Concomitant]
     Active Substance: FERROUS SULFATE

REACTIONS (1)
  - Drug ineffective [Unknown]
